FAERS Safety Report 9311916 (Version 1)
Quarter: 2013Q2

REPORT INFORMATION
  Report Type: Spontaneous
  Country: AR (occurrence: AR)
  Receive Date: 20130528
  Receipt Date: 20130528
  Transmission Date: 20140414
  Serious: Yes (Other)
  Sender: FDA-Public Use
  Company Number: PHHY2013AR051995

PATIENT
  Age: 4 Year
  Sex: Male

DRUGS (1)
  1. SANDIMMUN NEORAL [Suspect]
     Indication: NEPHROTIC SYNDROME
     Dosage: 1 DF, QD
     Route: 048

REACTIONS (6)
  - Swelling [Not Recovered/Not Resolved]
  - Apathy [Not Recovered/Not Resolved]
  - Micturition frequency decreased [Not Recovered/Not Resolved]
  - Chromaturia [Not Recovered/Not Resolved]
  - Protein total decreased [Not Recovered/Not Resolved]
  - Incorrect dose administered [Unknown]
